FAERS Safety Report 4315367-2 (Version None)
Quarter: 2004Q1

REPORT INFORMATION
  Report Type: 
  Country: None (occurrence: None)
  Receive Date: 20040310
  Receipt Date: 20040310
  Transmission Date: 20041129
  Serious: Yes (Hospitalization, Other)
  Sender: FDA-Public Use
  Company Number: None

PATIENT
  Age: 1 Year
  Sex: Female
  Weight: 11.3399 kg

DRUGS (5)
  1. PREDNISONE [Suspect]
     Indication: ACUTE LYMPHOCYTIC LEUKAEMIA
     Dosage: 40MG/M2/DAY PO TID
     Dates: start: 20040206, end: 20040305
  2. VINCRISTINE [Suspect]
     Dates: start: 20040206, end: 20040305
  3. E.COLI-L-ASP 10,000 U/M IM DAYS 2,5,8,12,15,19 [Suspect]
     Dosage: 10,000 U/M IM DAYS 2, 5, 8, 15, 19
     Route: 030
     Dates: start: 20040206, end: 20040305
  4. DAUNOMYCIN 30MG/M2/WEEK IV DAYS 8,15,22 [Suspect]
     Dosage: 30MG/M2/WEEK IV DAYS 8, 15, 22
     Route: 042
     Dates: start: 20040206, end: 20040305
  5. IT MTX DAYS 1 AND 8- 8 MG [Suspect]

REACTIONS (5)
  - FISTULA [None]
  - NEUTROPENIA [None]
  - PAIN [None]
  - PERIRECTAL ABSCESS [None]
  - PYREXIA [None]
